FAERS Safety Report 5010910-2 (Version None)
Quarter: 2006Q2

REPORT INFORMATION
  Report Type: 
  Country: None (occurrence: None)
  Receive Date: 20060525
  Receipt Date: 20060516
  Transmission Date: 20061013
  Serious: Yes (Other)
  Sender: FDA-Public Use
  Company Number: US-JNJFOC-20060503634

PATIENT
  Age: 44 Year
  Sex: Female

DRUGS (1)
  1. REMICADE [Suspect]
     Indication: RHEUMATOID ARTHRITIS
     Dosage: RECEIVED 9 INFUSIONS
     Route: 042

REACTIONS (4)
  - ARTHRALGIA [None]
  - JOINT SWELLING [None]
  - MYOSITIS [None]
  - PARALYSIS [None]
